FAERS Safety Report 11765170 (Version 1)
Quarter: 2015Q4

REPORT INFORMATION
  Report Type: Spontaneous
  Country: US (occurrence: US)
  Receive Date: 20151120
  Receipt Date: 20151120
  Transmission Date: 20160304
  Serious: No
  Sender: FDA-Public Use
  Company Number: US-ELI_LILLY_AND_COMPANY-US201312004594

PATIENT
  Age: 60 Year
  Sex: Female

DRUGS (17)
  1. FORTEO [Suspect]
     Active Substance: TERIPARATIDE
     Indication: OSTEOPOROSIS
     Dosage: UNK, QD
     Route: 065
     Dates: start: 20131017
  2. MOMETASONE FUROATE. [Interacting]
     Active Substance: MOMETASONE FUROATE
     Indication: PRODUCT USED FOR UNKNOWN INDICATION
     Route: 065
  3. CALCIUM 600+VIT D [Interacting]
     Active Substance: CALCIUM\ERGOCALCIFEROL
     Indication: OSTEOARTHRITIS
     Dosage: 600 MG, TID
     Route: 065
  4. CALCIUM 600+VIT D [Interacting]
     Active Substance: CALCIUM\ERGOCALCIFEROL
     Dosage: 400 MG, TID
     Route: 065
  5. LYRICA [Interacting]
     Active Substance: PREGABALIN
     Indication: NEURALGIA
  6. ZIRTEK [Interacting]
     Active Substance: CETIRIZINE HYDROCHLORIDE
     Indication: HYPERSENSITIVITY
     Dosage: 10 MG, QD
     Route: 065
  7. CYMBALTA [Concomitant]
     Active Substance: DULOXETINE HYDROCHLORIDE
     Indication: FIBROMYALGIA
     Dosage: 60 MG, QD
     Route: 065
     Dates: start: 2004
  8. D3 [Interacting]
     Active Substance: 25-HYDROXYCHOLECALCIFEROL, 5-TRANS-
     Indication: OSTEOARTHRITIS
     Dosage: 2000 MG, QD
     Route: 065
  9. FISH OIL [Interacting]
     Active Substance: FISH OIL
     Indication: RHEUMATOID ARTHRITIS
     Dosage: UNK, TIDU
     Route: 065
  10. ARAVA [Interacting]
     Active Substance: LEFLUNOMIDE
     Indication: RHEUMATOID ARTHRITIS
     Route: 065
  11. METFORMIN [Interacting]
     Active Substance: METFORMIN HYDROCHLORIDE
     Indication: DIABETES MELLITUS
     Dosage: 500 MG, QD
     Route: 065
  12. NORCO [Interacting]
     Active Substance: ACETAMINOPHEN\HYDROCODONE BITARTRATE
     Indication: PAIN
     Dosage: 10 MG, PRN
  13. SOMA [Interacting]
     Active Substance: CARISOPRODOL
     Indication: MYALGIA
     Dosage: 350 MG, QD
     Route: 065
  14. ACETAMINOPHEN. [Interacting]
     Active Substance: ACETAMINOPHEN
     Indication: PAIN
     Dosage: 325 MG, PRN
     Route: 065
  15. ORENCIA [Interacting]
     Active Substance: ABATACEPT
     Indication: RHEUMATOID ARTHRITIS
     Dosage: 1 ML, WEEKLY (1/W)
     Route: 058
  16. LYRICA [Interacting]
     Active Substance: PREGABALIN
     Indication: FIBROMYALGIA
     Dosage: 150 MG, BID
     Route: 065
  17. AMBIEN CR [Interacting]
     Active Substance: ZOLPIDEM TARTRATE
     Indication: PRODUCT USED FOR UNKNOWN INDICATION
     Dosage: 12.5 MG, QD
     Route: 065

REACTIONS (6)
  - Drug dose omission [None]
  - Urine abnormality [Unknown]
  - Wrong technique in product usage process [Recovered/Resolved]
  - Urinary tract infection [None]
  - Drug interaction [Unknown]
  - Injection site pain [Unknown]

NARRATIVE: CASE EVENT DATE: 201311
